FAERS Safety Report 9662810 (Version 2)
Quarter: 2013Q4

REPORT INFORMATION
  Report Type: Not Available
  Country: US (occurrence: US)
  Receive Date: 20131031
  Receipt Date: 20131031
  Transmission Date: 20140711
  Serious: No
  Sender: FDA-Public Use
  Company Number: US-PURDUE-USA-2010-0058814

PATIENT
  Sex: Female

DRUGS (1)
  1. OXYCONTIN (NDA 22-272) [Suspect]
     Indication: PAIN
     Dosage: 20 MG, UNK

REACTIONS (7)
  - Abdominal pain upper [Unknown]
  - Somnolence [Unknown]
  - Rash [Unknown]
  - Headache [Unknown]
  - Inadequate analgesia [Unknown]
  - Drug effect decreased [Unknown]
  - Drug intolerance [Unknown]
